FAERS Safety Report 20184318 (Version 2)
Quarter: 2022Q1

REPORT INFORMATION
  Report Type: Spontaneous
  Country: US (occurrence: US)
  Receive Date: 20211214
  Receipt Date: 20220124
  Transmission Date: 20220423
  Serious: Yes (Hospitalization, Other)
  Sender: FDA-Public Use
  Company Number: US-SK LIFE SCIENCE, INC-SKPVG-2021-000968

PATIENT

DRUGS (6)
  1. XCOPRI [Suspect]
     Active Substance: CENOBAMATE
     Indication: Partial seizures
     Dosage: 12.5 MILLIGRAM, QD
     Route: 048
     Dates: start: 20210908
  2. XCOPRI [Suspect]
     Active Substance: CENOBAMATE
     Dosage: 25 MILLIGRAM, QD
     Route: 048
     Dates: start: 20210922
  3. XCOPRI [Suspect]
     Active Substance: CENOBAMATE
     Dosage: 100 MILLIGRAM, QD
     Route: 048
     Dates: start: 202111
  4. XCOPRI [Suspect]
     Active Substance: CENOBAMATE
     Dosage: 50 MILLIGRAM, QD
     Route: 048
     Dates: start: 202111
  5. VIMPAT [Suspect]
     Active Substance: LACOSAMIDE
     Indication: Product used for unknown indication
     Dosage: UNK STOP DATE: 23-SEP-2021 00:00
     Route: 065
  6. DEPAKOTE [Suspect]
     Active Substance: DIVALPROEX SODIUM
     Indication: Product used for unknown indication
     Dosage: 750 MILLIGRAM, BID
     Route: 065

REACTIONS (14)
  - Groin pain [Not Recovered/Not Resolved]
  - Respiratory arrest [Not Recovered/Not Resolved]
  - Chills [Not Recovered/Not Resolved]
  - Ovarian cyst ruptured [Not Recovered/Not Resolved]
  - Aversion [Not Recovered/Not Resolved]
  - Retching [Not Recovered/Not Resolved]
  - Stupor [Not Recovered/Not Resolved]
  - Dehydration [Not Recovered/Not Resolved]
  - Abdominal discomfort [Not Recovered/Not Resolved]
  - Diarrhoea [Not Recovered/Not Resolved]
  - Decreased appetite [Not Recovered/Not Resolved]
  - Constipation [Not Recovered/Not Resolved]
  - Nausea [Not Recovered/Not Resolved]
  - Abdominal pain [Not Recovered/Not Resolved]

NARRATIVE: CASE EVENT DATE: 20210918
